FAERS Safety Report 9022407 (Version 2)
Quarter: 2014Q1

REPORT INFORMATION
  Report Type: Report from Study
  Country: BD (occurrence: BD)
  Receive Date: 20130118
  Receipt Date: 20140130
  Transmission Date: 20141002
  Serious: Yes (Death, Hospitalization)
  Sender: FDA-Public Use
  Company Number: PHHY2013BD004474

PATIENT
  Age: 58 Year
  Sex: Male

DRUGS (1)
  1. EXELON PATCH [Suspect]
     Indication: DEMENTIA
     Dosage: 4.6 MG, DAILY
     Route: 062
     Dates: start: 201104

REACTIONS (5)
  - Dementia [Fatal]
  - Cough [Unknown]
  - Loss of consciousness [Unknown]
  - Pyrexia [Unknown]
  - Dyspnoea [Unknown]
